FAERS Safety Report 4797266-5 (Version None)
Quarter: 2005Q4

REPORT INFORMATION
  Report Type: 
  Country: None (occurrence: None)
  Receive Date: 20051011
  Receipt Date: 20051011
  Transmission Date: 20060501
  Serious: No
  Sender: FDA-Public Use
  Company Number: None

PATIENT
  Age: 10 Year
  Sex: Female
  Weight: 75 kg

DRUGS (1)
  1. NAC DIAGNOSTIC REAGENT [Suspect]
     Indication: OVERDOSE
     Dosage: 11250 MG IV -BOLUS THEN 12.5 MG/KG/HR
     Route: 040
     Dates: start: 20050726

REACTIONS (6)
  - DRUG HYPERSENSITIVITY [None]
  - FLUSHING [None]
  - INFUSION RELATED REACTION [None]
  - PRURITUS [None]
  - RASH ERYTHEMATOUS [None]
  - VOMITING [None]
